FAERS Safety Report 20405246 (Version 1)
Quarter: 2022Q1

REPORT INFORMATION
  Report Type: Spontaneous
  Country: US (occurrence: None)
  Receive Date: 20220128
  Receipt Date: 20220128
  Transmission Date: 20220423
  Serious: Yes (Other)
  Sender: FDA-Public Use
  Company Number: None

PATIENT
  Age: 37 Year
  Sex: Female
  Weight: 72 kg

DRUGS (12)
  1. DOXORUBICIN [Suspect]
     Active Substance: DOXORUBICIN
     Indication: Neoplasm malignant
     Dates: start: 20210402, end: 20210923
  2. BLEOMYCIN [Suspect]
     Active Substance: BLEOMYCIN SULFATE
     Indication: Product used for unknown indication
  3. VINBLASTINE [Suspect]
     Active Substance: VINBLASTINE
     Indication: Product used for unknown indication
  4. DACARBAZINE [Suspect]
     Active Substance: DACARBAZINE
     Indication: Product used for unknown indication
  5. CLONAZEPAM [Concomitant]
     Active Substance: CLONAZEPAM
  6. ALLEGRA [Concomitant]
     Active Substance: FEXOFENADINE HYDROCHLORIDE
  7. OMEGAPROZALE CHEMO PORT [Concomitant]
  8. VITAMIN D [Concomitant]
  9. COLLAGEN [Concomitant]
     Active Substance: COLLAGEN
  10. MEDICINAL MUSHROOMS [Concomitant]
  11. WHEAT GERM [Concomitant]
     Active Substance: WHEAT GERM
  12. KRILL OIL [Concomitant]
     Active Substance: DIETARY SUPPLEMENT\KRILL OIL

REACTIONS (3)
  - Vitamin D deficiency [None]
  - Bone loss [None]
  - Dental caries [None]

NARRATIVE: CASE EVENT DATE: 20210924
